FAERS Safety Report 10638246 (Version 1)
Quarter: 2014Q4

REPORT INFORMATION
  Report Type: Spontaneous
  Country: US (occurrence: US)
  Receive Date: 20141208
  Receipt Date: 20141208
  Transmission Date: 20150529
  Serious: Yes (Other)
  Sender: FDA-Public Use
  Company Number: US-BAYER-2014-180597

PATIENT
  Age: 21 Year
  Sex: Female

DRUGS (1)
  1. SKYLA [Suspect]
     Active Substance: LEVONORGESTREL
     Indication: MENSTRUAL DISORDER
     Dosage: 14 MCG/24HR, CONT
     Route: 015
     Dates: start: 201406

REACTIONS (5)
  - Asthma [None]
  - Dyspnoea [None]
  - Fluid retention [None]
  - Off label use [None]
  - Rash [None]

NARRATIVE: CASE EVENT DATE: 2014
